FAERS Safety Report 7590844-X (Version None)
Quarter: 2011Q3

REPORT INFORMATION
  Report Type: 
  Country: None (occurrence: None)
  Receive Date: 20110705
  Receipt Date: 20110622
  Transmission Date: 20111222
  Serious: Yes (Hospitalization)
  Sender: FDA-Public Use
  Company Number: PHHY2011IT52331

PATIENT
  Sex: Female

DRUGS (9)
  1. FERROUS SULFATE TAB [Suspect]
     Indication: ANAEMIA
     Dosage: 105 MG, UNK
     Route: 048
     Dates: start: 20110105, end: 20110502
  2. ARANESP [Concomitant]
     Dosage: UNK
     Route: 058
  3. ASPIRIN [Concomitant]
     Dosage: 100 MG, UNK
     Route: 048
  4. DEPONIT [Concomitant]
     Dosage: UNK
     Route: 062
  5. ATORVASTATIN CALCIUM [Concomitant]
     Indication: HYPERCHOLESTEROLAEMIA
     Dosage: 40 MG, UNK
     Route: 048
     Dates: start: 20110105, end: 20110502
  6. MYFORTIC [Suspect]
     Indication: RENAL TRANSPLANT
     Dosage: 1080 MG DAILY DOSAGE
     Route: 048
     Dates: start: 20101230
  7. VALCYTE [Suspect]
     Indication: CYTOMEGALOVIRUS INFECTION
     Dosage: 1350 MG DAILY DOSAGE
     Route: 048
     Dates: start: 20110410, end: 20110502
  8. LOPRESSOR [Concomitant]
     Dosage: 100 MG, UNK
  9. MONOKET [Concomitant]
     Dosage: UNK

REACTIONS (3)
  - NAUSEA [None]
  - DECREASED APPETITE [None]
  - VOMITING [None]
